FAERS Safety Report 7381467-6 (Version None)
Quarter: 2011Q1

REPORT INFORMATION
  Report Type: 
  Country: None (occurrence: None)
  Receive Date: 20110329
  Receipt Date: 20110325
  Transmission Date: 20110831
  Serious: Yes (Death)
  Sender: FDA-Public Use
  Company Number: JP-PFIZER INC-2011066361

PATIENT
  Age: 42 Year
  Sex: Male

DRUGS (6)
  1. REBAMIPIDE [Concomitant]
     Indication: GASTRIC DISORDER
     Route: 048
  2. CHONDROITIN [Concomitant]
     Indication: ANALGESIC THERAPY
     Route: 041
  3. MIORELARK [Concomitant]
     Indication: ANALGESIC THERAPY
     Route: 048
  4. LYRICA [Suspect]
     Dosage: 75 MG, DAILY
     Route: 048
     Dates: start: 20110303, end: 20110322
  5. HEPALUS [Concomitant]
     Indication: ANALGESIC THERAPY
     Route: 041
  6. KENTAN [Concomitant]
     Indication: ANALGESIC THERAPY
     Route: 048

REACTIONS (4)
  - NEOPLASM MALIGNANT [None]
  - PAIN [None]
  - IMMUNODEFICIENCY [None]
  - SEPSIS [None]
